FAERS Safety Report 9822370 (Version 2)
Quarter: 2014Q2

REPORT INFORMATION
  Report Type: Spontaneous
  Country: GB (occurrence: GB)
  Receive Date: 20140116
  Receipt Date: 20140414
  Transmission Date: 20141212
  Serious: No
  Sender: FDA-Public Use
  Company Number: GB-JNJFOC-20140102488

PATIENT
  Sex: 0

DRUGS (2)
  1. DUROGESIC DTRANS [Suspect]
     Indication: NEUROPATHY PERIPHERAL
     Dosage: (100 UG/HR AND 50 UG/HR)
     Route: 062
  2. DUROGESIC DTRANS [Suspect]
     Indication: NEUROPATHY PERIPHERAL
     Route: 062

REACTIONS (3)
  - Breakthrough pain [Unknown]
  - Drug prescribing error [Unknown]
  - Inappropriate schedule of drug administration [Unknown]
